FAERS Safety Report 4802868-3 (Version None)
Quarter: 2005Q4

REPORT INFORMATION
  Report Type: 
  Country: None (occurrence: None)
  Receive Date: 20051019
  Receipt Date: 20051010
  Transmission Date: 20060501
  Serious: Yes (Hospitalization)
  Sender: FDA-Public Use
  Company Number: US-KINGPHARMUSA00001-K200501341

PATIENT
  Age: 63 Year
  Sex: Male
  Weight: 67 kg

DRUGS (14)
  1. ALTACE [Suspect]
  2. BIVALIRUDIN [Suspect]
     Dosage: 7 MG, UNK
     Dates: start: 20050217, end: 20050217
  3. BIVALIRUDIN [Suspect]
     Dosage: 656.25 MG, UNK
     Route: 042
     Dates: start: 20050217, end: 20050219
  4. SPIRONOLACTONE [Suspect]
  5. SODIUM POLYSTYRENE SULFONATE [Concomitant]
  6. CLOPIDOGREL [Concomitant]
  7. ACEBUTOLOL [Concomitant]
  8. AMLODIPINE [Concomitant]
  9. GLYCERYL TRINITRATE [Concomitant]
  10. HYDRALAZINE [Concomitant]
  11. SIMVASTATIN [Concomitant]
  12. GLIBENCLAMIDE [Concomitant]
  13. RABEPRAZOLE SODIUM [Concomitant]
  14. AMITRIPTYLINE HCL [Concomitant]

REACTIONS (10)
  - ASTHENIA [None]
  - BALANCE DISORDER [None]
  - CAROTID ARTERY STENOSIS [None]
  - FATIGUE [None]
  - HEADACHE [None]
  - HYPERKALAEMIA [None]
  - METABOLIC DISORDER [None]
  - MUSCLE SPASMS [None]
  - PARAESTHESIA [None]
  - TRANSIENT ISCHAEMIC ATTACK [None]
